FAERS Safety Report 25721041 (Version 1)
Quarter: 2025Q3

REPORT INFORMATION
  Report Type: Spontaneous
  Country: JP (occurrence: JP)
  Receive Date: 20250825
  Receipt Date: 20250825
  Transmission Date: 20251020
  Serious: Yes (Hospitalization, Other)
  Sender: Haleon PLC
  Company Number: JP-HALEON-2258807

PATIENT
  Age: 34 Year
  Sex: Female

DRUGS (1)
  1. DICLOFENAC [Suspect]
     Active Substance: DICLOFENAC
     Indication: Rotator cuff syndrome
     Dosage: 50MG

REACTIONS (7)
  - Small intestine ulcer [Recovered/Resolved]
  - Abdominal pain lower [Recovered/Resolved]
  - Small intestinal obstruction [Recovered/Resolved]
  - Abdominal tenderness [Recovered/Resolved]
  - Abdominal rebound tenderness [Recovered/Resolved]
  - Abdominal distension [Recovered/Resolved]
  - Abdominal pain [Recovered/Resolved]
